FAERS Safety Report 20814088 (Version 1)
Quarter: 2022Q2

REPORT INFORMATION
  Report Type: Spontaneous
  Country: DE (occurrence: DE)
  Receive Date: 20220511
  Receipt Date: 20220511
  Transmission Date: 20220721
  Serious: Yes (Other)
  Sender: FDA-Public Use
  Company Number: DE-PFIZER INC-202200649320

PATIENT
  Age: 71 Year
  Sex: Male

DRUGS (5)
  1. AXITINIB [Suspect]
     Active Substance: AXITINIB
     Indication: Renal cell carcinoma
     Dosage: 5 MG, 2X/DAY
     Dates: start: 20201103, end: 20210120
  2. AXITINIB [Suspect]
     Active Substance: AXITINIB
     Dosage: UNK
     Dates: start: 202102
  3. AXITINIB [Suspect]
     Active Substance: AXITINIB
     Dosage: 3 MG, 2X/DAY
  4. AVELUMAB [Suspect]
     Active Substance: AVELUMAB
     Indication: Renal cell carcinoma
     Dosage: 800 MG EVERY 2 WEEKS
     Dates: start: 20201103, end: 20210120
  5. AVELUMAB [Suspect]
     Active Substance: AVELUMAB
     Dosage: UNK
     Dates: start: 202102

REACTIONS (6)
  - Hypokalaemia [Unknown]
  - Hypertension [Unknown]
  - Skin toxicity [Unknown]
  - Fatigue [Unknown]
  - Diarrhoea [Unknown]
  - Off label use [Unknown]
